FAERS Safety Report 14237226 (Version 1)
Quarter: 2017Q4

REPORT INFORMATION
  Report Type: Spontaneous
  Country: US (occurrence: US)
  Receive Date: 20171129
  Receipt Date: 20171129
  Transmission Date: 20180321
  Serious: Yes (Death)
  Sender: FDA-Public Use
  Company Number: US-SA-2017SA236193

PATIENT
  Age: 67 Year
  Sex: Male

DRUGS (4)
  1. PNEUMOCOCCAL VACCINE POLYVALENT NOS [Suspect]
     Active Substance: PNEUMOCOCCAL VACCINE POLYVALENT
     Indication: IMMUNISATION
     Route: 065
     Dates: start: 20161107, end: 20161107
  2. XTANDI [Suspect]
     Active Substance: ENZALUTAMIDE
     Indication: HORMONE-REFRACTORY PROSTATE CANCER
     Route: 048
  3. FLUBLOK QUADRIVALENT 2017/2018 [Suspect]
     Active Substance: INFLUENZA A VIRUS A/HONG KONG/4801/2014 (H3N2) RECOMBINANT HEMAGGLUTININ ANTIGEN\INFLUENZA A VIRUS A/MICHIGAN/45/2015 (H1N1) RECOMBINANT HEMAGGLUTININ ANTIGEN\INFLUENZA B VIRUS B/BRISBANE/60/2008 RECOMBINANT HEMAGGLUTININ ANTIGEN\INFLUENZA B VIRUS B/PHUKET/3073/2013 RECOMBINANT HEMAGGLUTININ ANTIGEN
     Indication: IMMUNISATION
     Route: 065
     Dates: start: 20161107, end: 20161107
  4. XTANDI [Suspect]
     Active Substance: ENZALUTAMIDE
     Indication: HORMONE-REFRACTORY PROSTATE CANCER
     Route: 048

REACTIONS (10)
  - Contusion [Unknown]
  - Decreased appetite [Unknown]
  - Arthralgia [Unknown]
  - Depression [Unknown]
  - Headache [Unknown]
  - Hot flush [Not Recovered/Not Resolved]
  - Death [Fatal]
  - Pain in extremity [Not Recovered/Not Resolved]
  - Fatigue [Not Recovered/Not Resolved]
  - Vaccination site pain [Not Recovered/Not Resolved]

NARRATIVE: CASE EVENT DATE: 201611
